FAERS Safety Report 22307139 (Version 1)
Quarter: 2023Q2

REPORT INFORMATION
  Report Type: Spontaneous
  Country: CO (occurrence: CO)
  Receive Date: 20230511
  Receipt Date: 20230511
  Transmission Date: 20230721
  Serious: Yes (Other)
  Sender: FDA-Public Use
  Company Number: CO-MYLANLABS-2023M1048286

PATIENT
  Age: 9 Year
  Sex: Male
  Weight: 17 kg

DRUGS (8)
  1. CYSTEAMINE [Suspect]
     Active Substance: CYSTEAMINE
     Indication: Product used for unknown indication
     Dosage: UNK
     Route: 065
     Dates: start: 201406
  2. Kidcal [Concomitant]
     Dosage: 5 MILLILITER, BID (EVERY 12 HOURS, VO)
     Route: 065
  3. NUCTIS D [Concomitant]
     Dosage: 7 GTT DROPS, BID (EACH 12 HRS)
     Route: 065
  4. L carnitina [Concomitant]
     Dosage: 200 MILLIGRAM, TID (EVERY 8 HRS)
     Route: 065
  5. POTASSIUM CHLORIDE [Concomitant]
     Active Substance: POTASSIUM CHLORIDE
     Dosage: UNK, QD (1 VIAL EVERY 24 HRS)
     Route: 065
  6. ASCORBIC ACID [Concomitant]
     Active Substance: ASCORBIC ACID
     Dosage: 10 GTT DROPS, QD (EVERY 24 HRS)
     Route: 065
  7. FERROUS SULFATE [Concomitant]
     Active Substance: FERROUS SULFATE
     Dosage: 10 GTT DROPS, BID (EVERY 12 HRS )
     Route: 065
  8. CYSTEAMINE [Concomitant]
     Active Substance: CYSTEAMINE
     Indication: Cystinosis
     Dosage: 2 GTT DROPS, QID (EVERY 6 HRS)
     Route: 065
     Dates: start: 2014

REACTIONS (1)
  - Amino acid level increased [Not Recovered/Not Resolved]

NARRATIVE: CASE EVENT DATE: 20230421
